FAERS Safety Report 13559080 (Version 1)
Quarter: 2017Q2

REPORT INFORMATION
  Report Type: Spontaneous
  Country: CZ (occurrence: CZ)
  Receive Date: 20170518
  Receipt Date: 20170518
  Transmission Date: 20170830
  Serious: Yes (Other)
  Sender: FDA-Public Use
  Company Number: CZ-TOLMAR, INC.-2017CZ006049

PATIENT
  Age: 56 Year
  Sex: Male

DRUGS (2)
  1. ELIGARD [Suspect]
     Active Substance: LEUPROLIDE ACETATE
     Indication: PROSTATE CANCER
     Dosage: 22.5 MG, Q3MONTHS
     Route: 058
     Dates: start: 200909
  2. DOCETAXEL. [Suspect]
     Active Substance: DOCETAXEL
     Indication: PROSTATE CANCER
     Dosage: 75 MG/M2, Q3WEEKS
     Route: 042
     Dates: start: 201405, end: 201411

REACTIONS (4)
  - Prostate cancer [Unknown]
  - Hot flush [Unknown]
  - Skin toxicity [Unknown]
  - Weight increased [Unknown]

NARRATIVE: CASE EVENT DATE: 201405
